FAERS Safety Report 24085918 (Version 1)
Quarter: 2024Q3

REPORT INFORMATION
  Report Type: Spontaneous
  Country: US (occurrence: None)
  Receive Date: 20240712
  Receipt Date: 20240712
  Transmission Date: 20241017
  Serious: No
  Sender: Public
  Company Number: None

PATIENT
  Sex: Male

DRUGS (21)
  1. VIGABATRIN [Suspect]
     Active Substance: VIGABATRIN
     Indication: Epilepsy
     Dosage: FREQUENCY : TWICE A DAY;?OTHER ROUTE : GTUBE;?
     Route: 050
  2. VITAMINS [Concomitant]
     Active Substance: VITAMINS
  3. BACTRIM DC [Concomitant]
  4. AQUAPHOR [Concomitant]
     Active Substance: PETROLATUM
  5. VITAMIN A + D [Concomitant]
  6. TPN ELECTROLYTES II [Concomitant]
  7. ZYRTEC [Concomitant]
     Active Substance: CETIRIZINE HYDROCHLORIDE
  8. ALBUTEROL SULFATE [Concomitant]
     Active Substance: ALBUTEROL SULFATE
  9. GLYCERIN ADULT [Concomitant]
     Active Substance: GLYCERIN
  10. HEPARIN LOCK FLUSH [Concomitant]
     Active Substance: HEPARIN SODIUM
  11. MYLICON INFANTS GAS RELIE [Concomitant]
  12. FLOVENT HFA [Concomitant]
     Active Substance: FLUTICASONE PROPIONATE
  13. HYDROCORTONE [Concomitant]
     Active Substance: HYDROCORTISONE
  14. FLAGYL [Concomitant]
     Active Substance: METRONIDAZOLE\METRONIDAZOLE HYDROCHLORIDE
  15. ALBUTEROL [Concomitant]
     Active Substance: ALBUTEROL
  16. NEXIUM [Concomitant]
     Active Substance: ESOMEPRAZOLE MAGNESIUM
  17. PEPCID AC [Concomitant]
     Active Substance: FAMOTIDINE
  18. CLONAZEPAM [Concomitant]
     Active Substance: CLONAZEPAM
  19. ATROVENT HFA [Concomitant]
     Active Substance: IPRATROPIUM BROMIDE
  20. SOLU-CORTEF [Concomitant]
     Active Substance: HYDROCORTISONE SODIUM SUCCINATE
  21. SMOFLIPID [Concomitant]
     Active Substance: FISH OIL\MEDIUM-CHAIN TRIGLYCERIDES\OLIVE OIL\SOYBEAN OIL

REACTIONS (1)
  - Lennox-Gastaut syndrome [None]
